FAERS Safety Report 6618661-5 (Version None)
Quarter: 2010Q1

REPORT INFORMATION
  Report Type: 
  Country: None (occurrence: None)
  Receive Date: 20100302
  Receipt Date: 20091216
  Transmission Date: 20100710
  Serious: Yes (Disabling)
  Sender: FDA-Public Use
  Company Number: APP201000059

PATIENT
  Sex: Female

DRUGS (3)
  1. BUPIVACAINE HYDROCHLORIDE AND EPINEPHRINE [Suspect]
     Indication: PROCEDURAL PAIN
     Dosage: 25 ML, LEFT SAC SPACE, TIP PLACED IN GJH, INTRA-ARTICULAR
     Route: 014
     Dates: start: 20050510
  2. I-FLOW PAINBUSTER PAIN PUMP [Suspect]
     Indication: PROCEDURAL PAIN
     Dates: start: 20050510
  3. SURETAC II BIO ABSORBABLE FIXATION DEVICE [Suspect]
     Indication: ARTHROSCOPY
     Dates: start: 20050510

REACTIONS (7)
  - ARTHRALGIA [None]
  - BURNING SENSATION [None]
  - CHONDROLYSIS [None]
  - JOINT RANGE OF MOTION DECREASED [None]
  - MUSCULOSKELETAL DISCOMFORT [None]
  - MUSCULOSKELETAL PAIN [None]
  - SYNOVITIS [None]
